FAERS Safety Report 4343020-8 (Version None)
Quarter: 2004Q2

REPORT INFORMATION
  Report Type: 
  Country: None (occurrence: None)
  Receive Date: 20040416
  Receipt Date: 20040405
  Transmission Date: 20050107
  Serious: Yes (Life-Threatening)
  Sender: FDA-Public Use
  Company Number: 200410225BNE

PATIENT
  Age: 53 Year
  Sex: Male

DRUGS (8)
  1. ASPIRIN [Suspect]
     Indication: CEREBRAL ISCHAEMIA
     Dosage: 75 MG, TOTAL DAILY, ORAL
     Route: 048
     Dates: end: 20040303
  2. ASPIRIN [Suspect]
     Indication: MYOCARDIAL INFARCTION
     Dosage: 75 MG, TOTAL DAILY, ORAL
     Route: 048
     Dates: end: 20040303
  3. ASPIRIN [Suspect]
     Indication: PROPHYLAXIS
     Dosage: 75 MG, TOTAL DAILY, ORAL
     Route: 048
     Dates: end: 20040303
  4. MOBIC [Suspect]
     Indication: BACK PAIN
     Dosage: 15 MG, TOTAL DAILY, ORAL
     Route: 048
     Dates: end: 20040303
  5. CARBAMAZEPINE [Concomitant]
  6. LOFEPRAMINE [Concomitant]
  7. RISPERDAL [Concomitant]
  8. TYLEX [Concomitant]

REACTIONS (6)
  - DUODENAL ULCER [None]
  - DUODENITIS [None]
  - GASTRIC ULCER [None]
  - GASTRITIS [None]
  - HAEMOGLOBIN DECREASED [None]
  - VITAMIN B12 DEFICIENCY [None]
